FAERS Safety Report 12547103 (Version 2)
Quarter: 2016Q3

REPORT INFORMATION
  Report Type: Spontaneous
  Country: US (occurrence: US)
  Receive Date: 20160711
  Receipt Date: 20160731
  Transmission Date: 20161109
  Serious: Yes (Other)
  Sender: FDA-Public Use
  Company Number: US-ALLERGAN-1662345US

PATIENT
  Age: 67 Year
  Sex: Male

DRUGS (2)
  1. RAPAFLO [Suspect]
     Active Substance: SILODOSIN
     Indication: DYSURIA
     Dosage: 1 DF, UNK
     Dates: start: 2010
  2. PROGUARD [Concomitant]
     Indication: PROSTATOMEGALY

REACTIONS (1)
  - Nephrolithiasis [Unknown]
